FAERS Safety Report 9202374 (Version 6)
Quarter: 2013Q3

REPORT INFORMATION
  Report Type: Spontaneous
  Country: JP (occurrence: JP)
  Receive Date: 20130401
  Receipt Date: 20130924
  Transmission Date: 20140515
  Serious: Yes (Death)
  Sender: FDA-Public Use
  Company Number: PHHY2013JP031529

PATIENT
  Age: 70 Year
  Sex: Male
  Weight: 59 kg

DRUGS (48)
  1. VOLTAREN [Suspect]
     Indication: ANTIPYRESIS
     Dosage: 25 MG, PRN
     Route: 054
     Dates: start: 20110602, end: 20110607
  2. VOLTAREN [Suspect]
     Dosage: 50 MG, PRN
     Route: 054
     Dates: start: 20110603
  3. VOLTAREN [Suspect]
     Dosage: 100 MG,
     Route: 054
     Dates: start: 20110727
  4. TAKEPRON [Suspect]
     Indication: THERAPEUTIC PROCEDURE
     Dosage: 30 MG, QD
     Route: 048
     Dates: start: 20110609, end: 20110728
  5. TAKEPRON [Suspect]
     Dosage: 15 MG,
     Route: 048
     Dates: start: 20110727
  6. SENNOSIDE [Concomitant]
     Indication: COLONOSCOPY
     Dosage: 24 MG, UNK
     Route: 048
     Dates: start: 20110601, end: 20110601
  7. ALLELOCK [Concomitant]
     Indication: PRURITUS
     Dosage: 10 MG, UNK
     Route: 048
     Dates: start: 20110525, end: 20110622
  8. ATARAX-P [Concomitant]
     Indication: PRURITUS
     Dosage: 25 MG, UNK
     Route: 048
     Dates: start: 20110525
  9. CASODEX [Concomitant]
     Indication: PROSTATE CANCER
     Dosage: 80 MG, UNK
     Route: 048
     Dates: start: 20110525
  10. LASIX [Concomitant]
     Indication: OEDEMA PERIPHERAL
     Dosage: 20 MG, UNK
     Route: 048
     Dates: start: 20110527
  11. MUBEN [Concomitant]
     Indication: COLONOSCOPY
     Dosage: 1 DF, UNK
     Route: 048
     Dates: start: 20110601, end: 20110601
  12. MUCOSTA [Concomitant]
     Indication: ABDOMINAL DISCOMFORT
     Dosage: 300 MG, UNK
     Route: 048
     Dates: start: 20110528
  13. MUCOSTA [Concomitant]
     Dosage: 100 MG, UNK
     Route: 048
  14. MUCOSTA [Concomitant]
     Dosage: 200 MG, UNK
     Route: 048
  15. STROCAIN//OXETACAINE [Concomitant]
     Indication: ABDOMINAL PAIN UPPER
     Dosage: 30 MG, UNK
     Route: 048
     Dates: start: 2011, end: 20110606
  16. NEUER [Concomitant]
     Indication: ABDOMINAL PAIN UPPER
     Dosage: 2 G, UNK
     Route: 048
     Dates: start: 20110605, end: 20110609
  17. TAGAMET [Concomitant]
     Indication: ABDOMINAL PAIN UPPER
     Dosage: 4 MG, UNK
     Route: 048
     Dates: start: 20110605, end: 20110609
  18. ULCERLMIN [Concomitant]
     Indication: ABDOMINAL PAIN UPPER
     Dosage: 3 DF, DAILY
     Route: 048
     Dates: start: 20110609, end: 20110629
  19. ULCERLMIN [Concomitant]
     Indication: DUODENAL ULCER
  20. RINDERON [Concomitant]
     Indication: DERMATITIS EXFOLIATIVE
     Dosage: 2 MG, DAILY
     Route: 048
     Dates: start: 20110611
  21. RINDERON [Concomitant]
     Dosage: 1.5 MG, DAILY
     Route: 048
  22. RINDERON [Concomitant]
     Dosage: 1 MG, DAILY
     Route: 048
  23. CARTOL [Concomitant]
     Indication: OSTEOPOROSIS PROPHYLAXIS
     Dosage: 0.5 UG, UNK
     Route: 048
     Dates: start: 20110617
  24. ALLEGRA [Concomitant]
     Indication: PRURITUS
     Dosage: 120 MG, UNK
     Route: 048
     Dates: start: 20110622
  25. DAIOKANZOTO [Concomitant]
     Indication: THERAPEUTIC PROCEDURE
     Dosage: 7.5 G, UNK
     Route: 048
     Dates: start: 20110629, end: 20110728
  26. CALONAL [Concomitant]
     Indication: PYREXIA
     Dosage: 400 MG, UNK
     Route: 048
     Dates: start: 20110707
  27. ALMETA [Concomitant]
     Indication: DERMATITIS EXFOLIATIVE
     Dosage: UNK UKN, UNK
     Route: 061
     Dates: start: 20110523
  28. GENTACIN [Concomitant]
     Indication: DERMATITIS EXFOLIATIVE
     Dosage: UNK UKN, UNK
     Route: 061
     Dates: start: 20110524, end: 20110721
  29. RINDERON-DP [Concomitant]
     Indication: DERMATITIS EXFOLIATIVE
     Dosage: UNK UKN, UNK
     Route: 061
     Dates: start: 20110523, end: 20110715
  30. ZINC OXIDE [Concomitant]
     Indication: DERMATITIS EXFOLIATIVE
     Dosage: UNK UKN, UNK
     Route: 061
     Dates: start: 20110523, end: 20110715
  31. RINDERON-VG [Concomitant]
     Indication: DERMATITIS EXFOLIATIVE
     Dosage: UNK UKN, UNK
     Route: 061
     Dates: start: 20110602
  32. MYCOSPOR [Concomitant]
     Indication: TINEA INFECTION
     Route: 061
     Dates: start: 20110630
  33. NERISONA [Concomitant]
     Indication: DERMATITIS EXFOLIATIVE
     Route: 061
     Dates: start: 20110630, end: 20110721
  34. PREDONINE [Concomitant]
     Indication: DERMATITIS EXFOLIATIVE
     Dosage: 15 MG, DAILY
     Route: 048
     Dates: start: 20110528
  35. PREDONINE [Concomitant]
     Dosage: 5 MG, DAILY
     Route: 048
     Dates: end: 20110607
  36. CELESTAMINE [Concomitant]
     Route: 048
  37. SHOFUSAN [Concomitant]
     Route: 048
  38. LOCOID [Concomitant]
     Route: 061
  39. VESICUM [Concomitant]
     Route: 061
  40. UREPEARL [Concomitant]
     Route: 061
  41. SWORD [Concomitant]
     Indication: INFLAMMATION
     Dosage: 528.4 MG, UNK
     Route: 048
     Dates: start: 20110722, end: 20110725
  42. LAMISIL [Concomitant]
     Indication: ANTIFUNGAL TREATMENT
     Dosage: 125 MG, UNK
     Route: 048
     Dates: start: 20110722
  43. EPL//POLYENE PHOSPHATIDYLCHOLINE [Concomitant]
     Indication: HEPATIC FUNCTION ABNORMAL
     Dosage: 500 MG, UNK
     Route: 048
     Dates: start: 20110722
  44. GOKUMISIN [Concomitant]
     Indication: HEPATIC FUNCTION ABNORMAL
     Dosage: 200 MG, UNK
     Route: 048
     Dates: start: 20110722
  45. FLOMOX//CEFCAPENE PIVOXIL HYDROCHLORIDE [Concomitant]
     Indication: INFLAMMATION
     Dosage: 300 MG,
     Route: 048
     Dates: start: 20110725, end: 20110731
  46. CEFTRIAXONE [Concomitant]
     Indication: INFLAMMATION
     Dosage: 1 G, UNK
     Route: 042
     Dates: start: 20110725, end: 20110725
  47. KENALOG [Concomitant]
     Indication: CHEILITIS
     Route: 062
     Dates: start: 20110730
  48. ZITHROMAC [Concomitant]
     Indication: INFLAMMATION
     Dosage: 500 MG, UNK
     Dates: start: 20110730, end: 20110801

REACTIONS (6)
  - Disseminated intravascular coagulation [Fatal]
  - Toxic epidermal necrolysis [Fatal]
  - Erythema [Fatal]
  - Oral discomfort [Fatal]
  - Lip pain [Fatal]
  - Stomatitis [Fatal]
